FAERS Safety Report 23177202 (Version 1)
Quarter: 2023Q4

REPORT INFORMATION
  Report Type: Spontaneous
  Country: US (occurrence: US)
  Receive Date: 20231113
  Receipt Date: 20231113
  Transmission Date: 20240110
  Serious: No
  Sender: FDA-Public Use
  Company Number: US-SA-SAC20231108000351

PATIENT
  Sex: Female

DRUGS (4)
  1. DUPIXENT [Suspect]
     Active Substance: DUPILUMAB
     Indication: Dermatitis atopic
     Dosage: 300 MG, QOW
     Route: 058
  2. CYCLOBENZAPRINE [Concomitant]
     Active Substance: CYCLOBENZAPRINE
  3. OXYCODONE HYDROCHLORIDE [Concomitant]
     Active Substance: OXYCODONE HYDROCHLORIDE
  4. TEMAZEPAM [Concomitant]
     Active Substance: TEMAZEPAM

REACTIONS (8)
  - Procedural pain [Unknown]
  - Endometriosis [Unknown]
  - Uterine leiomyoma [Unknown]
  - Cyst [Unknown]
  - Hypoaesthesia oral [Unknown]
  - Hysterectomy [Unknown]
  - Injection site pain [Unknown]
  - Therapeutic response shortened [Unknown]
